FAERS Safety Report 22063754 (Version 6)
Quarter: 2023Q4

REPORT INFORMATION
  Report Type: Report from Study
  Country: BR (occurrence: BR)
  Receive Date: 20230306
  Receipt Date: 20231031
  Transmission Date: 20240109
  Serious: Yes (Other)
  Sender: FDA-Public Use
  Company Number: BR-002147023-NVSC2023BR010570

PATIENT
  Age: 62 Year
  Sex: Female
  Weight: 70 kg

DRUGS (10)
  1. RYDAPT [Suspect]
     Active Substance: MIDOSTAURIN
     Indication: Mastocytosis
     Dosage: 25 MG, QD (4 CAPSULES PER DAY) (PATIENT USED 4 CAPSULES OF 25MG IN THE MORNING AND 4 CAPSULES OF 25M
     Route: 065
  2. RYDAPT [Suspect]
     Active Substance: MIDOSTAURIN
     Indication: Systemic mastocytosis
     Dosage: 25 MG, Q12H (2 CAPSULES PER DAY)
     Route: 065
  3. RYDAPT [Suspect]
     Active Substance: MIDOSTAURIN
     Dosage: 8 DOSAGE FORM, BID (START DATE: 5 MONTHS AGO)
     Route: 048
  4. RYDAPT [Suspect]
     Active Substance: MIDOSTAURIN
     Dosage: 8 DOSAGE FORM, BID (4 TABLETS IN  THE MORNING  AND 4 TABLETS  AT NIGHT) (LESS THAN  A YEAR AGO  (SHE
     Route: 048
  5. ATORVASTATIN [Suspect]
     Active Substance: ATORVASTATIN
     Indication: Blood cholesterol increased
     Dosage: 1 DOSAGE FORM, QD
     Route: 048
  6. ATORVASTATIN [Suspect]
     Active Substance: ATORVASTATIN
     Indication: Blood triglycerides decreased
     Dosage: 1 DOSAGE FORM, QD (AT NIGHT) (ABOUT 8  MONTHS  AGO (SHE  WAS  UNABLE TO GIVE A  PRECISE DATE))
     Route: 048
  7. CHOLECALCIFEROL [Concomitant]
     Active Substance: CHOLECALCIFEROL
     Indication: Vitamin supplementation
     Dosage: 50 DOSAGE FORM, QW (FORMULATION : DROPS) (START DATE: 3 MONTHS AGO AND STOP DATE: AFTER 1 MONTH)
     Route: 048
  8. CHOLECALCIFEROL [Concomitant]
     Active Substance: CHOLECALCIFEROL
     Dosage: 7 DOSAGE FORM, QW (AFTER USING  5 DROPS IN 1ST WEEK)
     Route: 048
  9. IMATINIB [Concomitant]
     Active Substance: IMATINIB
     Indication: Systemic mastocytosis
     Dosage: UNK (AFTER LESS  THAN 2  MONTHS  AFTER THE  START OF THE  TREATMENT)
     Route: 048
  10. INTERFERON [Concomitant]
     Active Substance: INTERFERON
     Indication: Systemic mastocytosis
     Dosage: UNK (3 INJECTIONS/ 2  INJECTIONS)
     Route: 065

REACTIONS (18)
  - Blood triglycerides increased [Recovering/Resolving]
  - Hypoaesthesia [Recovering/Resolving]
  - Weight increased [Not Recovered/Not Resolved]
  - Fall [Recovering/Resolving]
  - Ligament sprain [Recovering/Resolving]
  - Joint swelling [Recovering/Resolving]
  - Tryptase decreased [Not Recovered/Not Resolved]
  - Abdominal pain [Recovering/Resolving]
  - Tinnitus [Recovering/Resolving]
  - Abdominal distension [Recovering/Resolving]
  - Malaise [Recovered/Resolved]
  - Dyspepsia [Recovering/Resolving]
  - Headache [Recovering/Resolving]
  - Decreased appetite [Recovering/Resolving]
  - Pain [Unknown]
  - Insomnia [Not Recovered/Not Resolved]
  - Head discomfort [Recovering/Resolving]
  - Aggression [Recovering/Resolving]

NARRATIVE: CASE EVENT DATE: 20230407
